FAERS Safety Report 24169136 (Version 1)
Quarter: 2024Q3

REPORT INFORMATION
  Report Type: Report from Study
  Country: EG (occurrence: None)
  Receive Date: 20240802
  Receipt Date: 20240802
  Transmission Date: 20241017
  Serious: Yes (Life-Threatening, Other)
  Sender: ASTRAZENECA
  Company Number: 2023A239854

PATIENT
  Age: 26710 Day
  Sex: Female

DRUGS (2)
  1. LYNPARZA [Suspect]
     Active Substance: OLAPARIB
     Indication: Ovarian cancer stage I
     Route: 048
     Dates: start: 20230824
  2. LYNPARZA [Suspect]
     Active Substance: OLAPARIB
     Indication: Ovarian cancer stage I
     Dosage: REDUCED HER DOSE FROM 600MG TO 300MG
     Route: 048

REACTIONS (2)
  - Genital infection fungal [Not Recovered/Not Resolved]
  - Myocardial infarction [Unknown]
